FAERS Safety Report 21171485 (Version 1)
Quarter: 2022Q3

REPORT INFORMATION
  Report Type: Spontaneous
  Country: CN (occurrence: CN)
  Receive Date: 20220804
  Receipt Date: 20220804
  Transmission Date: 20221027
  Serious: Yes (Life-Threatening, Hospitalization)
  Sender: FDA-Public Use
  Company Number: CN-PFIZER INC-PV202200035692

PATIENT
  Age: 47 Year
  Sex: Male
  Weight: 64 kg

DRUGS (2)
  1. CYTARABINE [Suspect]
     Active Substance: CYTARABINE
     Indication: Diffuse large B-cell lymphoma
     Dosage: 3.5 G, 2X/DAY
     Route: 041
     Dates: start: 20220714, end: 20220715
  2. METHOTREXATE [Suspect]
     Active Substance: METHOTREXATE
     Indication: Diffuse large B-cell lymphoma
     Dosage: 6 G, 1X/DAY
     Dates: start: 20220713, end: 20220713

REACTIONS (3)
  - Granulocyte count decreased [Recovering/Resolving]
  - Pyrexia [Unknown]
  - Cough [Unknown]

NARRATIVE: CASE EVENT DATE: 20220723
